FAERS Safety Report 4819508-X (Version None)
Quarter: 2005Q4

REPORT INFORMATION
  Report Type: 
  Country: None (occurrence: None)
  Receive Date: 20051031
  Receipt Date: 20050610
  Transmission Date: 20060501
  Serious: No
  Sender: FDA-Public Use
  Company Number: 2005PV000025

PATIENT
  Age: 62 Year
  Sex: Female
  Weight: 72.5755 kg

DRUGS (21)
  1. SYMLIN [Suspect]
     Indication: DIABETES MELLITUS INSULIN-DEPENDENT
     Dosage: 5.0 UNITS; SC; SEE IMAGE
     Route: 058
     Dates: start: 20050609
  2. SYMLIN [Suspect]
     Indication: DIABETES MELLITUS INSULIN-DEPENDENT
     Dosage: 5.0 UNITS; SC; SEE IMAGE
     Route: 058
     Dates: start: 20050612
  3. HUMALOG [Concomitant]
  4. LIPITOR [Concomitant]
  5. VERELAN [Concomitant]
  6. LISINOPRIL [Concomitant]
  7. ASPIRIN [Concomitant]
  8. ACIPHEX [Concomitant]
  9. RANITIDINE [Concomitant]
  10. SYNTHROID [Concomitant]
  11. FIBERCON [Concomitant]
  12. CALTRATE [Concomitant]
  13. CO-Q10 [Concomitant]
  14. TOCOPHEROL CONCENTRATE CAP [Concomitant]
  15. BORIGE OIL [Concomitant]
  16. CHROMIUM BICOLINATE [Concomitant]
  17. LIPOLIQ ACID [Concomitant]
  18. VITAMIN B6 [Concomitant]
  19. VITAMIN B-12 [Concomitant]
  20. FOLIC ACID [Concomitant]
  21. VITAMIN B COMPLEX CAP [Concomitant]

REACTIONS (2)
  - BLOOD GLUCOSE FLUCTUATION [None]
  - NAUSEA [None]
